FAERS Safety Report 7763907-3 (Version None)
Quarter: 2011Q3

REPORT INFORMATION
  Report Type: 
  Country: None (occurrence: None)
  Receive Date: 20110919
  Receipt Date: 20110902
  Transmission Date: 20111222
  Serious: Yes (Hospitalization)
  Sender: FDA-Public Use
  Company Number: 2011SP025883

PATIENT
  Sex: Male

DRUGS (1)
  1. CLARITIN [Suspect]

REACTIONS (1)
  - FAECES DISCOLOURED [None]
